FAERS Safety Report 5810840-X (Version None)
Quarter: 2008Q3

REPORT INFORMATION
  Report Type: 
  Country: None (occurrence: None)
  Receive Date: 20080710
  Receipt Date: 20080626
  Transmission Date: 20090109
  Serious: Yes (Hospitalization)
  Sender: FDA-Public Use
  Company Number: 233639J08USA

PATIENT
  Age: 29 Year
  Sex: Male
  Weight: 136.0791 kg

DRUGS (3)
  1. REBIF [Suspect]
     Indication: MULTIPLE SCLEROSIS
     Dosage: 44 MCG, 3 IN 1 WEEKS, SUBCUTANEOUS
     Route: 058
     Dates: start: 20070812, end: 20071116
  2. PROZAC [Concomitant]
  3. AMANTADINE HCL [Concomitant]

REACTIONS (6)
  - CHOLELITHIASIS [None]
  - DEPRESSION [None]
  - HYPERTENSION [None]
  - LIPIDS INCREASED [None]
  - PANCREATITIS [None]
  - SLEEP APNOEA SYNDROME [None]
